FAERS Safety Report 8428545-8 (Version None)
Quarter: 2012Q2

REPORT INFORMATION
  Report Type: 
  Country: None (occurrence: None)
  Receive Date: 20120606
  Receipt Date: 20120606
  Transmission Date: 20120825
  Serious: Yes (Life-Threatening)
  Sender: FDA-Public Use
  Company Number: None

PATIENT
  Sex: Female
  Weight: 94 kg

DRUGS (1)
  1. METHOHEXITAL 100MG [Suspect]
     Indication: SEDATIVE THERAPY
     Dosage: 100MG ONCE IV BOLUS
     Route: 040
     Dates: start: 20120531

REACTIONS (8)
  - OLIGURIA [None]
  - PULSELESS ELECTRICAL ACTIVITY [None]
  - BRADYCARDIA [None]
  - EJECTION FRACTION DECREASED [None]
  - MULTI-ORGAN FAILURE [None]
  - PERICARDIAL EFFUSION [None]
  - RESPIRATORY FAILURE [None]
  - SINUS BRADYCARDIA [None]
